FAERS Safety Report 7607380-4 (Version None)
Quarter: 2011Q3

REPORT INFORMATION
  Report Type: 
  Country: None (occurrence: None)
  Receive Date: 20110713
  Receipt Date: 20110630
  Transmission Date: 20111222
  Serious: Yes (Other)
  Sender: FDA-Public Use
  Company Number: US-MYLANLABS-2011S1013901

PATIENT
  Age: 78 Year
  Sex: Male

DRUGS (3)
  1. TACROLIMUS [Suspect]
     Route: 065
     Dates: start: 20090801
  2. PEUMUS BOLDUS [Interacting]
     Route: 065
     Dates: end: 20100901
  3. CELLCEPT [Concomitant]
     Route: 065

REACTIONS (2)
  - DRUG LEVEL DECREASED [None]
  - DRUG INTERACTION [None]
